FAERS Safety Report 23871881 (Version 1)
Quarter: 2024Q2

REPORT INFORMATION
  Report Type: Spontaneous
  Country: US (occurrence: US)
  Receive Date: 20240520
  Receipt Date: 20240520
  Transmission Date: 20240716
  Serious: No
  Sender: FDA-Public Use
  Company Number: US-ABBVIE-5762098

PATIENT
  Sex: Female

DRUGS (3)
  1. VENCLEXTA [Suspect]
     Active Substance: VENETOCLAX
     Indication: Product used for unknown indication
     Dosage: CYCLIC, 3 MONTHS CYCLIC UNKNOWN
     Route: 048
  2. XOSPATA [Suspect]
     Active Substance: GILTERITINIB
     Indication: Product used for unknown indication
     Dosage: CYCLIC, 3 MONTHS UNKNOWN
     Route: 065
  3. DECITABINE [Suspect]
     Active Substance: DECITABINE
     Indication: Product used for unknown indication
     Route: 065

REACTIONS (2)
  - Full blood count decreased [Unknown]
  - Dizziness [Unknown]
